FAERS Safety Report 10884504 (Version 1)
Quarter: 2015Q1

REPORT INFORMATION
  Report Type: Spontaneous
  Country: None (occurrence: None)
  Receive Date: 20150227
  Receipt Date: 20150227
  Transmission Date: 20150721
  Serious: Yes (Hospitalization, Other)
  Sender: FDA-Public Use
  Company Number: None

PATIENT
  Age: 68 Year
  Sex: Female
  Weight: 62.14 kg

DRUGS (2)
  1. SUPREP BOWEL PREP [Suspect]
     Active Substance: MAGNESIUM SULFATE\POTASSIUM SULFATE\SODIUM SULFATE
     Indication: BOWEL PREPARATION
     Dosage: 2 BOTTLES WITH WATER 1:00 AM AND 8:00 PM
     Dates: start: 20150121
  2. SUPREP BOWEL PREP [Suspect]
     Active Substance: MAGNESIUM SULFATE\POTASSIUM SULFATE\SODIUM SULFATE
     Indication: COLONOSCOPY
     Dosage: 2 BOTTLES WITH WATER 1:00 AM AND 8:00 PM
     Dates: start: 20150121

REACTIONS (12)
  - Sluggishness [None]
  - Nausea [None]
  - Peripheral swelling [None]
  - Tongue disorder [None]
  - Facial paresis [None]
  - Chest discomfort [None]
  - Eye swelling [None]
  - Muscle spasms [None]
  - Dyspnoea [None]
  - Lip disorder [None]
  - Abdominal pain upper [None]
  - Dry mouth [None]

NARRATIVE: CASE EVENT DATE: 20150123
